FAERS Safety Report 24034550 (Version 1)
Quarter: 2024Q2

REPORT INFORMATION
  Report Type: Spontaneous
  Country: US (occurrence: None)
  Receive Date: 20240628
  Receipt Date: 20240628
  Transmission Date: 20240715
  Serious: Yes (Other)
  Sender: FDA-Public Use
  Company Number: None

PATIENT
  Age: 49 Year
  Sex: Female
  Weight: 45.9 kg

DRUGS (2)
  1. DUPIXENT [Suspect]
     Active Substance: DUPILUMAB
     Route: 058
  2. TITZEPTIDE [Concomitant]

REACTIONS (7)
  - Joint swelling [None]
  - Peripheral swelling [None]
  - Peripheral swelling [None]
  - Musculoskeletal stiffness [None]
  - Muscle spasms [None]
  - Psoriasis [None]
  - Amenorrhoea [None]

NARRATIVE: CASE EVENT DATE: 20240430
